FAERS Safety Report 5018993-0 (Version None)
Quarter: 2006Q2

REPORT INFORMATION
  Report Type: 
  Country: None (occurrence: None)
  Receive Date: 20060606
  Receipt Date: 20060531
  Transmission Date: 20061013
  Serious: Yes (Other)
  Sender: FDA-Public Use
  Company Number: CA-GLAXOSMITHKLINE-A0607817A

PATIENT
  Age: 53 Year
  Sex: Female

DRUGS (4)
  1. WELLBUTRIN SR [Suspect]
     Indication: DRUG USE FOR UNKNOWN INDICATION
     Dosage: 100MG PER DAY
     Route: 048
  2. AMOXIL [Concomitant]
  3. CLONAZEPAM [Concomitant]
  4. ELTROXIN [Concomitant]

REACTIONS (4)
  - HEADACHE [None]
  - PARAESTHESIA [None]
  - PHARYNGEAL OEDEMA [None]
  - TREMOR [None]
